FAERS Safety Report 11710505 (Version 1)
Quarter: 2015Q4

REPORT INFORMATION
  Report Type: Spontaneous
  Country: US (occurrence: US)
  Receive Date: 20151104
  Receipt Date: 20151104
  Transmission Date: 20160304
  Serious: No
  Sender: FDA-Public Use
  Company Number: US-ELI_LILLY_AND_COMPANY-US201104004461

PATIENT
  Sex: Female

DRUGS (1)
  1. FORTEO [Suspect]
     Active Substance: TERIPARATIDE
     Indication: OSTEOPOROSIS
     Dosage: UNK UNK, QD
     Dates: start: 201008

REACTIONS (14)
  - Hair colour changes [Unknown]
  - Dizziness [Unknown]
  - Burning sensation [Unknown]
  - Balance disorder [Unknown]
  - Peripheral swelling [Unknown]
  - Asthenia [Recovering/Resolving]
  - Dysstasia [Unknown]
  - Headache [Unknown]
  - Otorrhoea [Recovered/Resolved]
  - Abdominal distension [Unknown]
  - Sinus disorder [Unknown]
  - Arthralgia [Unknown]
  - Drug hypersensitivity [Recovering/Resolving]
  - Walking aid user [Unknown]
